FAERS Safety Report 12743432 (Version 7)
Quarter: 2017Q2

REPORT INFORMATION
  Report Type: Spontaneous
  Country: US (occurrence: US)
  Receive Date: 20160914
  Receipt Date: 20170426
  Transmission Date: 20170830
  Serious: Yes (Hospitalization, Other)
  Sender: FDA-Public Use
  Company Number: PHEH2016US023302

PATIENT
  Sex: Female

DRUGS (4)
  1. ZOFRAN [Suspect]
     Active Substance: ONDANSETRON HYDROCHLORIDE
     Dosage: 4 MG, UNK
     Route: 042
     Dates: start: 20060312
  2. ZOFRAN [Suspect]
     Active Substance: ONDANSETRON HYDROCHLORIDE
     Indication: PRODUCT USED FOR UNKNOWN INDICATION
     Route: 048
  3. ZOFRAN [Suspect]
     Active Substance: ONDANSETRON HYDROCHLORIDE
     Indication: VOMITING IN PREGNANCY
     Dosage: 8 MG, UNK
     Route: 042
     Dates: start: 20060206, end: 20060222
  4. ZOFRAN ODT [Suspect]
     Active Substance: ONDANSETRON HYDROCHLORIDE
     Indication: VOMITING IN PREGNANCY
     Dosage: 8 MG, TID
     Route: 048

REACTIONS (18)
  - Proteinuria [Unknown]
  - Gestational hypertension [Unknown]
  - Iron deficiency anaemia [Unknown]
  - Pain [Unknown]
  - Premature delivery [Unknown]
  - Hypokalaemia [Unknown]
  - Hyponatraemia [Unknown]
  - Maternal exposure during pregnancy [Unknown]
  - Abdominal pain [Unknown]
  - Vaginal haemorrhage [Unknown]
  - Stress [Unknown]
  - Syncope [Unknown]
  - Anxiety [Unknown]
  - Normal newborn [Unknown]
  - Dehydration [Unknown]
  - Pelvic pain [Unknown]
  - Headache [Unknown]
  - Product use in unapproved indication [Unknown]
